FAERS Safety Report 21698810 (Version 1)
Quarter: 2022Q4

REPORT INFORMATION
  Report Type: Spontaneous
  Country: US (occurrence: None)
  Receive Date: 20221208
  Receipt Date: 20221208
  Transmission Date: 20230112
  Serious: Yes (Death)
  Sender: FDA-Public Use
  Company Number: US-ROCHE-3232609

PATIENT
  Sex: Female

DRUGS (2)
  1. ACTEMRA [Suspect]
     Active Substance: TOCILIZUMAB
     Indication: Interstitial lung disease
     Dosage: STRENGTH: 162MG/0.9ML
     Route: 058
     Dates: start: 202208, end: 20221130
  2. ACTEMRA [Suspect]
     Active Substance: TOCILIZUMAB

REACTIONS (2)
  - Rheumatoid lung [Fatal]
  - Rheumatoid arthritis [Fatal]

NARRATIVE: CASE EVENT DATE: 20221130
